FAERS Safety Report 6387779-7 (Version None)
Quarter: 2009Q4

REPORT INFORMATION
  Report Type: 
  Country: None (occurrence: None)
  Receive Date: 20091005
  Receipt Date: 20090921
  Transmission Date: 20100525
  Serious: Yes (Other)
  Sender: FDA-Public Use
  Company Number: PHHY2009CA36361

PATIENT
  Sex: Female

DRUGS (3)
  1. ACLASTA [Suspect]
     Indication: OSTEOPOROSIS
     Dosage: UNK
     Dates: start: 20080714
  2. IMIPRAMINE [Interacting]
     Dosage: 20 MG, QHS
  3. SYNTHROID [Concomitant]
     Dosage: 100 MICROGRAM/DAY

REACTIONS (6)
  - CONDUCTION DISORDER [None]
  - DIZZINESS [None]
  - DRUG INTERACTION [None]
  - FALL [None]
  - FEELING ABNORMAL [None]
  - SYNCOPE [None]
